FAERS Safety Report 9744493 (Version 2)
Quarter: 2014Q2

REPORT INFORMATION
  Report Type: Spontaneous
  Country: US (occurrence: US)
  Receive Date: 20131210
  Receipt Date: 20140415
  Transmission Date: 20141212
  Serious: Yes (Hospitalization)
  Sender: FDA-Public Use
  Company Number: US-B.I. PHARMACEUTICALS,INC./RIDGEFIELD-2013-BI-41528BP

PATIENT
  Age: 73 Year
  Sex: Male
  Weight: 118.84 kg

DRUGS (5)
  1. PRADAXA [Suspect]
     Indication: ATRIAL FIBRILLATION
     Dosage: 300 MG
     Route: 048
     Dates: start: 20111006, end: 20120301
  2. AMIODARONE [Concomitant]
     Dosage: 600 MG
     Route: 065
  3. FUROSEMIDE [Concomitant]
     Dosage: 40 MG
     Route: 065
  4. LISINOPRIL [Concomitant]
     Dosage: 10 MG
     Route: 048
  5. TOPROL XL [Concomitant]
     Dosage: 50 MG
     Route: 065

REACTIONS (4)
  - Haemorrhage [Unknown]
  - Gastrointestinal haemorrhage [Unknown]
  - Haemorrhagic anaemia [Unknown]
  - Coagulopathy [Unknown]
